FAERS Safety Report 4735492-1 (Version None)
Quarter: 2005Q3

REPORT INFORMATION
  Report Type: 
  Country: None (occurrence: None)
  Receive Date: 20050801
  Receipt Date: 20050801
  Transmission Date: 20060218
  Serious: Yes (Hospitalization)
  Sender: FDA-Public Use
  Company Number: None

PATIENT
  Age: 67 Year
  Sex: Male
  Weight: 96 kg

DRUGS (9)
  1. METHOTREXATE [Suspect]
     Indication: B-CELL LYMPHOMA
     Dosage: 5550 MG IV
     Route: 042
     Dates: start: 20040323
  2. OXACILLIN [Suspect]
     Indication: STAPHYLOCOCCAL BACTERAEMIA
     Dosage: 10 GM IV CONT INF
     Route: 042
     Dates: start: 20040309
  3. DEXAMETHASONE [Concomitant]
  4. PAROXETINE HCL [Concomitant]
  5. UNFRACTIONATED HEPARIN [Concomitant]
  6. LEUCOVORIN [Concomitant]
  7. KEPPRA [Concomitant]
  8. PROCARBAZINE [Concomitant]
  9. RANITIDINE HCL [Concomitant]

REACTIONS (3)
  - DRUG TOXICITY [None]
  - PULMONARY EMBOLISM [None]
  - RENAL FAILURE ACUTE [None]
